FAERS Safety Report 9693402 (Version 2)
Quarter: 2014Q1

REPORT INFORMATION
  Report Type: Spontaneous
  Country: FR (occurrence: FR)
  Receive Date: 20131118
  Receipt Date: 20140110
  Transmission Date: 20141002
  Serious: Yes (Death, Hospitalization)
  Sender: FDA-Public Use
  Company Number: FR-EISAI INC-E2020-13142-SPO-FR

PATIENT
  Age: 80 Year
  Sex: Female

DRUGS (13)
  1. ARICEPT [Suspect]
     Indication: DEMENTIA ALZHEIMER^S TYPE
     Route: 048
     Dates: start: 20130212, end: 20130409
  2. ARICEPT [Suspect]
     Route: 048
     Dates: start: 20130410
  3. LYSANXIA [Suspect]
     Indication: ANXIETY
     Route: 065
     Dates: start: 201309, end: 20131014
  4. NUCTALON [Suspect]
     Indication: SLEEP DISORDER
     Route: 048
     Dates: start: 201309, end: 20131014
  5. IMETH [Suspect]
     Indication: RHEUMATOID ARTHRITIS
     Route: 065
     Dates: start: 2002
  6. IMETH [Suspect]
     Route: 065
     Dates: end: 20131015
  7. CORTANCYL [Suspect]
     Indication: RHEUMATOID ARTHRITIS
     Route: 065
     Dates: end: 20130310
  8. CORTANCYL [Suspect]
     Route: 065
     Dates: start: 20130311
  9. SPECIAFOLDINE [Concomitant]
     Indication: PRODUCT USED FOR UNKNOWN INDICATION
  10. ACTONEL [Concomitant]
     Indication: PRODUCT USED FOR UNKNOWN INDICATION
  11. DENSICAL [Concomitant]
     Indication: PRODUCT USED FOR UNKNOWN INDICATION
     Dosage: CALCIUM CARBONATE 500 MG + CHOLECALCIFEROL 400 IU
     Dates: end: 20130212
  12. DENSICAL [Concomitant]
     Dosage: UNKNOWN
     Dates: start: 20130410
  13. LIPANTHYL [Concomitant]
     Indication: PRODUCT USED FOR UNKNOWN INDICATION

REACTIONS (1)
  - Delirium [Fatal]
